FAERS Safety Report 16533194 (Version 3)
Quarter: 2022Q4

REPORT INFORMATION
  Report Type: Other
  Country: CA (occurrence: CA)
  Receive Date: 20190704
  Receipt Date: 20221116
  Transmission Date: 20230113
  Serious: Yes (Death)
  Sender: FDA-Public Use
  Company Number: CA-APOTEX-2019AP017401

PATIENT
  Age: 68 Year
  Sex: Male

DRUGS (21)
  1. GEMCITABINE [Suspect]
     Active Substance: GEMCITABINE
     Indication: Pancreatic carcinoma
     Dosage: 2100 MG, UNK THREE EVERY 28 DAYS
     Route: 041
  2. GEMCITABINE [Suspect]
     Active Substance: GEMCITABINE
     Dosage: 2100 MILLIGRAM (FREQUENCY 1 EVERY 9.33 DAYS)
     Route: 041
  3. ABRAXANE [Suspect]
     Active Substance: PACLITAXEL
     Indication: Pancreatic carcinoma
     Dosage: 160 MG, UNK THREE EVERY 28 DAYS
     Route: 041
  4. ABRAXANE [Suspect]
     Active Substance: PACLITAXEL
     Dosage: 160 MILLIGRAM (FREQUENCY 1 EVERY 9.33 DAYS)
     Route: 041
  5. DURVALUMAB [Suspect]
     Active Substance: DURVALUMAB
     Indication: Pancreatic carcinoma
     Dosage: 1500 MG, ONE EVERY 4 WEEKS
     Route: 041
  6. DURVALUMAB [Suspect]
     Active Substance: DURVALUMAB
     Dosage: 1500 MG, UNK
     Route: 041
  7. TREMELIMUMAB [Suspect]
     Active Substance: TREMELIMUMAB
     Indication: Pancreatic carcinoma
     Dosage: 75 MG, ONE EVERY FOUR WEEKS
     Route: 041
  8. DURVALUMAB [Suspect]
     Active Substance: DURVALUMAB
     Indication: Pancreatic carcinoma
     Dosage: 1500 MILLIGRAM (FREQUENCY 1 EVERY 4 WEEK)
     Route: 041
  9. AVENA SATIVA POLLEN [Concomitant]
     Active Substance: AVENA SATIVA POLLEN
     Indication: Rash
     Dosage: UNK
     Route: 065
  10. ENOXAPARIN [Concomitant]
     Active Substance: ENOXAPARIN
     Indication: Thrombosis
     Dosage: UNK
     Route: 065
  11. ENOXAPARIN [Concomitant]
     Active Substance: ENOXAPARIN
     Indication: Embolism
  12. LOPERAMIDE [Concomitant]
     Active Substance: LOPERAMIDE
     Indication: Diarrhoea
     Dosage: UNK
     Route: 065
  13. LORAZEPAM [Concomitant]
     Active Substance: LORAZEPAM
     Indication: Insomnia
     Dosage: UNK
     Route: 065
  14. METOCLOPRAMIDE [Concomitant]
     Active Substance: METOCLOPRAMIDE
     Indication: Prophylaxis of nausea and vomiting
     Dosage: UNK
     Route: 065
  15. PANCREATIN [Concomitant]
     Active Substance: PANCRELIPASE
     Indication: Supplementation therapy
     Dosage: UNK
     Route: 065
  16. VITAMIN K [Concomitant]
     Active Substance: PHYTONADIONE
     Indication: Supplementation therapy
     Dosage: UNK
     Route: 065
  17. OMEPRAZOLE MAGNESIUM [Concomitant]
     Active Substance: OMEPRAZOLE MAGNESIUM
     Indication: Gastrooesophageal reflux disease
     Dosage: UNK
     Route: 065
  18. OMEPRAZOLE MAGNESIUM [Concomitant]
     Active Substance: OMEPRAZOLE MAGNESIUM
     Indication: Dyspepsia
  19. ALGINIC ACID W/ALUMINIUM HYDROXIDE /00237601/ [Concomitant]
     Indication: Gastrooesophageal reflux disease
     Dosage: UNK
     Route: 065
  20. ALGINIC ACID W/ALUMINIUM HYDROXIDE /00237601/ [Concomitant]
     Indication: Dyspepsia
  21. VITAMIN K1 [Concomitant]
     Active Substance: PHYTONADIONE
     Indication: Supplementation therapy
     Dosage: UNK
     Route: 065

REACTIONS (1)
  - Liver function test increased [Fatal]
